FAERS Safety Report 7194066-6 (Version None)
Quarter: 2010Q4

REPORT INFORMATION
  Report Type: 
  Country: None (occurrence: None)
  Receive Date: 20101223
  Receipt Date: 20100927
  Transmission Date: 20110411
  Serious: No
  Sender: FDA-Public Use
  Company Number: US-AMGEN-KDL437363

PATIENT

DRUGS (6)
  1. ENBREL [Suspect]
     Indication: RHEUMATOID ARTHRITIS
     Dosage: 50 MG, QWK
     Route: 058
     Dates: start: 20060301, end: 20100801
  2. PREDNISONE [Concomitant]
     Dosage: 2 MG, QD
     Route: 048
  3. PRENATAL VITAMINS [Concomitant]
     Dosage: UNK UNK, QD
     Route: 048
  4. LOVAZA [Concomitant]
     Dosage: UNK UNK, UNK
     Route: 048
  5. CALCIUM [Concomitant]
     Dosage: UNK UNK, UNK
     Route: 048
  6. IRON [Concomitant]

REACTIONS (1)
  - ANTINUCLEAR ANTIBODY POSITIVE [None]
